FAERS Safety Report 7838195-X (Version None)
Quarter: 2011Q4

REPORT INFORMATION
  Report Type: 
  Country: None (occurrence: None)
  Receive Date: 20111024
  Receipt Date: 20111018
  Transmission Date: 20120403
  Serious: Yes (Hospitalization, Congenital Anomaly, Other)
  Sender: FDA-Public Use
  Company Number: GXKR2011DE03089

PATIENT

DRUGS (7)
  1. PREDNISOLONE [Suspect]
     Dosage: MATERNAL DOSE: 5 MG/D
     Route: 064
  2. FOLIC ACID [Concomitant]
     Indication: PROPHYLAXIS OF NEURAL TUBE DEFECT
     Dosage: MATERNAL DOSE: 5 MG/D
     Route: 064
  3. ACETYLSALICYLSAEURE [Concomitant]
     Indication: THROMBOSIS PROPHYLAXIS
     Dosage: MATERNAL DOSE: 200 MG/D
     Route: 064
  4. LANSOPRAZOLE [Concomitant]
     Indication: GASTRITIS
     Dosage: MATERNAL DOSE: 30 MG/D
     Route: 064
  5. OMEPRAZOLE [Concomitant]
     Indication: GASTRITIS
     Dosage: MATERNAL DOSE: 40 MG/D
     Route: 064
     Dates: start: 20101006, end: 20110502
  6. HUMIRA [Suspect]
     Indication: CROHN'S DISEASE
     Dosage: MATERNAL DOSE: 40 MG, BIW
     Route: 064
  7. ENOXAPARIN SODIUM [Concomitant]
     Indication: THROMBOSIS PROPHYLAXIS
     Dosage: MATERNAL DOSE: 100 MG/D
     Route: 064

REACTIONS (11)
  - DEVICE RELATED INFECTION [None]
  - MATERNAL EXPOSURE DURING PREGNANCY [None]
  - INFANTILE APNOEIC ATTACK [None]
  - OXYGEN SATURATION DECREASED [None]
  - VENTRICULAR SEPTAL DEFECT [None]
  - ATRIAL SEPTAL DEFECT [None]
  - PULMONARY ARTERY STENOSIS CONGENITAL [None]
  - OESOPHAGEAL ATRESIA [None]
  - SYNDACTYLY [None]
  - SMALL FOR DATES BABY [None]
  - HYPOTONIA NEONATAL [None]
